FAERS Safety Report 5902675-4 (Version None)
Quarter: 2008Q3

REPORT INFORMATION
  Report Type: 
  Country: None (occurrence: None)
  Receive Date: 20080929
  Receipt Date: 20080929
  Transmission Date: 20090109
  Serious: Yes (Hospitalization)
  Sender: FDA-Public Use
  Company Number: None

PATIENT
  Age: 33 Year
  Sex: Female
  Weight: 54.4316 kg

DRUGS (8)
  1. AMRIX [Suspect]
     Indication: MUSCLE SPASMS
     Dosage: 30MG QD PO
     Route: 048
     Dates: start: 20080821
  2. AMRIX [Suspect]
     Indication: MYALGIA
     Dosage: 30MG QD PO
     Route: 048
     Dates: start: 20080821
  3. AMRIX [Suspect]
     Indication: MUSCLE SPASMS
     Dosage: 30MG QD PO
     Route: 048
     Dates: start: 20080822
  4. AMRIX [Suspect]
     Indication: MYALGIA
     Dosage: 30MG QD PO
     Route: 048
     Dates: start: 20080822
  5. AMRIX [Suspect]
     Dates: start: 20080822
  6. OXYCONTIN [Concomitant]
  7. PERCOCET [Concomitant]
  8. NEURONTIN [Concomitant]

REACTIONS (1)
  - GRAND MAL CONVULSION [None]
